FAERS Safety Report 17909749 (Version 1)
Quarter: 2020Q2

REPORT INFORMATION
  Report Type: Spontaneous
  Country: CN (occurrence: CN)
  Receive Date: 20200618
  Receipt Date: 20200618
  Transmission Date: 20200714
  Serious: Yes (Other)
  Sender: FDA-Public Use
  Company Number: ALC2020CN004446

PATIENT
  Age: 68 Year
  Sex: Female
  Weight: 45 kg

DRUGS (1)
  1. FLUORESCITE [Suspect]
     Active Substance: FLUORESCEIN SODIUM
     Indication: ANGIOGRAM
     Dosage: 0.30 G, OT
     Route: 042
     Dates: start: 20200513, end: 20200513

REACTIONS (1)
  - Drug hypersensitivity [Recovering/Resolving]

NARRATIVE: CASE EVENT DATE: 20200513
